FAERS Safety Report 20211239 (Version 1)
Quarter: 2021Q4

REPORT INFORMATION
  Report Type: Spontaneous
  Country: CN (occurrence: CN)
  Receive Date: 20211221
  Receipt Date: 20211221
  Transmission Date: 20220303
  Serious: Yes (Other)
  Sender: FDA-Public Use
  Company Number: CN-009507513-2112CHN006377

PATIENT
  Age: 34 Year
  Sex: Male
  Weight: 55 kg

DRUGS (9)
  1. IMIPENEM AND CILASTATIN [Suspect]
     Active Substance: CILASTATIN SODIUM\IMIPENEM
     Indication: Nocardiosis
     Dosage: 0.5 GRAM, Q6H
     Dates: start: 20210104
  2. AMIKACIN [Suspect]
     Active Substance: AMIKACIN
     Indication: Nocardiosis
     Dosage: 0.8 GRAM, QD, IVGTT FOR 1H
     Route: 041
     Dates: start: 20210104
  3. SULFAMETHOXAZOLE [Suspect]
     Active Substance: SULFAMETHOXAZOLE
     Indication: Nocardiosis
     Dosage: 0.96 GRAM, Q6H
     Route: 048
     Dates: start: 20210104
  4. CEFMETAZOLE [Concomitant]
     Active Substance: CEFMETAZOLE
     Indication: Brain abscess
     Dosage: UNK
     Dates: start: 20201230
  5. LEVOFLOXACIN [Concomitant]
     Active Substance: LEVOFLOXACIN
     Indication: Brain abscess
     Dosage: UNK
     Dates: start: 20201230
  6. SODIUM CHLORIDE [Concomitant]
     Active Substance: SODIUM CHLORIDE
     Dosage: 100 MILLILITER, Q6H
     Dates: start: 20210104
  7. SODIUM CHLORIDE [Concomitant]
     Active Substance: SODIUM CHLORIDE
     Dosage: 250 MILLILITER, QD
     Route: 041
     Dates: start: 20210104
  8. PIPERACILLIN SODIUM\TAZOBACTAM SODIUM [Concomitant]
     Active Substance: PIPERACILLIN SODIUM\TAZOBACTAM SODIUM
     Dosage: 4.5 GRAM, Q8H
     Route: 041
     Dates: start: 20210101
  9. VANCOMYCIN [Concomitant]
     Active Substance: VANCOMYCIN
     Dosage: 1 GRAM, Q12H
     Route: 041
     Dates: start: 20210101

REACTIONS (2)
  - Drug-induced liver injury [Recovered/Resolved]
  - Product use in unapproved indication [Unknown]

NARRATIVE: CASE EVENT DATE: 20210104
